FAERS Safety Report 6564046-X (Version None)
Quarter: 2010Q1

REPORT INFORMATION
  Report Type: 
  Country: None (occurrence: None)
  Receive Date: 20100131
  Receipt Date: 20100108
  Transmission Date: 20100710
  Serious: No
  Sender: FDA-Public Use
  Company Number: US-ALLERGAN-1000250US

PATIENT

DRUGS (1)
  1. BOTOX COSMETIC [Suspect]
     Indication: SKIN WRINKLING
     Dosage: 17 UNITS, SINGLE
     Route: 030

REACTIONS (2)
  - INJECTION SITE HAEMATOMA [None]
  - INJECTION SITE MASS [None]
